FAERS Safety Report 12471503 (Version 1)
Quarter: 2016Q2

REPORT INFORMATION
  Report Type: Spontaneous
  Country: US (occurrence: None)
  Receive Date: 20160615
  Receipt Date: 20160615
  Transmission Date: 20160815
  Serious: Yes (Hospitalization, Disabling)
  Sender: FDA-Public Use
  Company Number: None

PATIENT
  Age: 0 Day
  Sex: Male

DRUGS (1)
  1. VITAMIN K [Suspect]
     Active Substance: PHYTONADIONE

REACTIONS (3)
  - Renal failure [None]
  - Coagulopathy [None]
  - Adrenal disorder [None]

NARRATIVE: CASE EVENT DATE: 20020923
